FAERS Safety Report 7539208-5 (Version None)
Quarter: 2011Q2

REPORT INFORMATION
  Report Type: 
  Country: None (occurrence: None)
  Receive Date: 20110610
  Receipt Date: 20110603
  Transmission Date: 20111010
  Serious: Yes (Other)
  Sender: FDA-Public Use
  Company Number: JP-JNJFOC-20110411550

PATIENT
  Sex: Female

DRUGS (15)
  1. TOPIRAMATE [Suspect]
     Indication: EPILEPSY
     Route: 048
     Dates: start: 20110413, end: 20110420
  2. FAMOTIDINE [Concomitant]
     Route: 065
     Dates: start: 20110328, end: 20110328
  3. PANTHENOL [Concomitant]
     Route: 065
     Dates: start: 20110328, end: 20110404
  4. VICCILLIN S [Concomitant]
     Route: 065
     Dates: start: 20110328, end: 20110331
  5. VICCLOX [Concomitant]
     Route: 065
     Dates: start: 20110328, end: 20110415
  6. TEGRETOL [Concomitant]
     Route: 048
     Dates: start: 20110331
  7. VANCOMYCIN [Concomitant]
     Route: 065
     Dates: start: 20110328, end: 20110331
  8. LENDORMIN [Concomitant]
     Route: 048
     Dates: start: 20110413, end: 20110418
  9. TOPIRAMATE [Suspect]
     Route: 048
     Dates: start: 20110404, end: 20110412
  10. PHENYTOIN [Concomitant]
     Route: 048
     Dates: start: 20110405, end: 20110415
  11. PHENYTOIN [Concomitant]
     Route: 065
     Dates: start: 20110328, end: 20110404
  12. LANSOPRAZOLE [Concomitant]
     Route: 048
     Dates: start: 20110329
  13. ZOSYN [Concomitant]
     Route: 065
     Dates: start: 20110415, end: 20110418
  14. ROCEPHIN [Concomitant]
     Route: 065
     Dates: start: 20110328, end: 20110406
  15. POTASSIUM-ASPARTATE [Concomitant]
     Route: 048
     Dates: start: 20110330, end: 20110406

REACTIONS (1)
  - RESPIRATORY FAILURE [None]
